FAERS Safety Report 9919260 (Version 1)
Quarter: 2014Q1

REPORT INFORMATION
  Report Type: Spontaneous
  Country: JP (occurrence: JP)
  Receive Date: 20140224
  Receipt Date: 20140224
  Transmission Date: 20141002
  Serious: Yes (Other)
  Sender: FDA-Public Use
  Company Number: JP-JNJFOC-20140211938

PATIENT
  Sex: 0

DRUGS (2)
  1. RISPERDAL [Suspect]
     Indication: RESTLESSNESS
     Route: 048
  2. HERBAL MEDICINE [Concomitant]
     Indication: PRODUCT USED FOR UNKNOWN INDICATION
     Route: 048

REACTIONS (6)
  - Pleural effusion [Unknown]
  - Cardiac failure [Unknown]
  - Weight increased [Unknown]
  - Face oedema [Unknown]
  - Back pain [Unknown]
  - Off label use [Unknown]
